FAERS Safety Report 12609308 (Version 1)
Quarter: 2016Q3

REPORT INFORMATION
  Report Type: Report from Study
  Country: US (occurrence: US)
  Receive Date: 20160801
  Receipt Date: 20160801
  Transmission Date: 20161109
  Serious: Yes (Life-Threatening, Other)
  Sender: FDA-Public Use
  Company Number: US-ROCHE-1060769

PATIENT
  Age: 66 Year
  Sex: Female
  Weight: 49.9 kg

DRUGS (10)
  1. CISPLATIN. [Suspect]
     Active Substance: CISPLATIN
     Indication: SMALL CELL LUNG CANCER
     Dosage: ON CYCLE 4 AT TIME OF EVENT, TOTAL DOSE ADMINISTERED THIS COURSE 113 MG, LAST DOSE PRIOR TO SAE 06/D
     Route: 042
     Dates: start: 20100927, end: 20101206
  2. VISMODEGIB [Suspect]
     Active Substance: VISMODEGIB
     Dosage: TREATMENT ASSIGNED CODE: ARM B, COURSE 3
     Route: 048
     Dates: start: 20101115
  3. VISMODEGIB [Suspect]
     Active Substance: VISMODEGIB
     Dosage: TREATMENT ASSIGNED CODE: ARM B, COURSE 4
     Route: 048
     Dates: start: 20101206
  4. VISMODEGIB [Suspect]
     Active Substance: VISMODEGIB
     Dosage: TREATMENT ASSIGNED CODE: ARM B, COURSE 7
     Route: 048
     Dates: start: 20110209
  5. VISMODEGIB [Suspect]
     Active Substance: VISMODEGIB
     Dosage: TREATMENT ASSIGNED CODE: ARM B, COURSE 2
     Route: 048
     Dates: start: 20101018
  6. VISMODEGIB [Suspect]
     Active Substance: VISMODEGIB
     Dosage: TREATMENT ASSIGNED CODE: ARM B, COURSE 5
     Route: 048
     Dates: start: 20101229
  7. VISMODEGIB [Suspect]
     Active Substance: VISMODEGIB
     Indication: SMALL CELL LUNG CANCER
     Dosage: TREATMENT ASSIGNED CODE: ARM B, COURSE 1 (3150 MG)
     Route: 048
     Dates: start: 20100927
  8. VISMODEGIB [Suspect]
     Active Substance: VISMODEGIB
     Dosage: TREATMENT ASSIGNED CODE: ARM B, COURSE 6
     Route: 048
     Dates: start: 20110119
  9. VISMODEGIB [Suspect]
     Active Substance: VISMODEGIB
     Dosage: TREATMENT ASSIGNED CODE: ARM B, COURSE 8
     Route: 048
     Dates: start: 20110302
  10. ETOPOSIDE. [Suspect]
     Active Substance: ETOPOSIDE
     Indication: SMALL CELL LUNG CANCER
     Dosage: CYCLE =21DAYS, ON CYCLE 4 AT TIME OF EVENT, TOTAL DOSE ADMINISTERED THIS COURSE 152MG, LAST DOSE PRI
     Route: 042
     Dates: start: 20100927, end: 20101208

REACTIONS (6)
  - White blood cell count decreased [Unknown]
  - Arthralgia [Unknown]
  - Pain [Unknown]
  - Platelet count decreased [Recovered/Resolved]
  - Back pain [Unknown]
  - Platelet count decreased [Unknown]

NARRATIVE: CASE EVENT DATE: 20101214
